FAERS Safety Report 5579079-X (Version None)
Quarter: 2008Q1

REPORT INFORMATION
  Report Type: 
  Country: None (occurrence: None)
  Receive Date: 20080102
  Receipt Date: 20071220
  Transmission Date: 20080703
  Serious: Yes (Disabling)
  Sender: FDA-Public Use
  Company Number: JP-ASTRAZENECA-2007AP06905

PATIENT
  Age: 73 Year
  Sex: Female
  Weight: 36 kg

DRUGS (3)
  1. IRESSA [Suspect]
     Indication: LUNG NEOPLASM MALIGNANT
     Route: 048
     Dates: start: 20070919, end: 20071025
  2. INSULIN NOVO REGULAR [Concomitant]
     Dosage: UNKNOWN DOSE
     Route: 065
  3. ACTOS [Concomitant]
     Dosage: UNKNOWN DOSE
     Route: 048

REACTIONS (1)
  - HEPATIC FUNCTION ABNORMAL [None]
